FAERS Safety Report 22358199 (Version 3)
Quarter: 2023Q2

REPORT INFORMATION
  Report Type: Spontaneous
  Country: JP (occurrence: JP)
  Receive Date: 20230524
  Receipt Date: 20230629
  Transmission Date: 20230722
  Serious: Yes (Hospitalization)
  Sender: FDA-Public Use
  Company Number: JP-ABBVIE-5178157

PATIENT

DRUGS (2)
  1. VENCLEXTA [Suspect]
     Active Substance: VENETOCLAX
     Indication: Leukaemia
     Route: 048
  2. FEBUXOSTAT EG [Concomitant]
     Indication: Product used for unknown indication
     Route: 048

REACTIONS (2)
  - Diabetes mellitus management [Unknown]
  - Tumour lysis syndrome [Unknown]
